FAERS Safety Report 7415092-5 (Version None)
Quarter: 2011Q2

REPORT INFORMATION
  Report Type: 
  Country: None (occurrence: None)
  Receive Date: 20110414
  Receipt Date: 20110411
  Transmission Date: 20111010
  Serious: Yes (Hospitalization)
  Sender: FDA-Public Use
  Company Number: FR-ROCHE-770770

PATIENT
  Sex: Female

DRUGS (1)
  1. RIVOTRIL [Suspect]
     Route: 065
     Dates: start: 20110304, end: 20110304

REACTIONS (1)
  - POISONING [None]
